FAERS Safety Report 12727181 (Version 2)
Quarter: 2017Q2

REPORT INFORMATION
  Report Type: Report from Study
  Country: US (occurrence: US)
  Receive Date: 20160909
  Receipt Date: 20170508
  Transmission Date: 20170830
  Serious: No
  Sender: FDA-Public Use
  Company Number: US-AMGEN-USASL2016117054

PATIENT
  Age: 41 Year
  Sex: Male

DRUGS (3)
  1. ENBREL [Suspect]
     Active Substance: ETANERCEPT
     Dosage: UNK UNK, 2 TIMES/WK
     Route: 065
  2. ENBREL [Suspect]
     Active Substance: ETANERCEPT
     Dosage: UNK UNK, QWK
     Route: 065
     Dates: start: 2016, end: 2016
  3. ENBREL [Suspect]
     Active Substance: ETANERCEPT
     Indication: PSORIASIS
     Dosage: 50 MG, 2 TIMES/WK (EVERY 3 DAYS)
     Route: 065
     Dates: start: 201603

REACTIONS (11)
  - Drug effect decreased [Not Recovered/Not Resolved]
  - Injection site mass [Unknown]
  - Wrong technique in product usage process [Unknown]
  - Psoriasis [Unknown]
  - Underdose [Unknown]
  - Injection site extravasation [Unknown]
  - Injection site pain [Unknown]
  - Pain in extremity [Unknown]
  - Injection site bruising [Unknown]
  - Intentional product misuse [Unknown]
  - Injection site haemorrhage [Unknown]

NARRATIVE: CASE EVENT DATE: 2016
